FAERS Safety Report 6771307-8 (Version None)
Quarter: 2010Q2

REPORT INFORMATION
  Report Type: 
  Country: None (occurrence: None)
  Receive Date: 20100616
  Receipt Date: 20100607
  Transmission Date: 20101027
  Serious: Yes (Disabling)
  Sender: FDA-Public Use
  Company Number: CA-ASTRAZENECA-2010SE26642

PATIENT
  Age: 51 Year
  Sex: Female

DRUGS (7)
  1. CRESTOR [Suspect]
     Route: 048
  2. CRESTOR [Suspect]
     Route: 048
  3. ELTROXIN [Concomitant]
     Route: 048
  4. IRON [Concomitant]
     Route: 048
  5. MULTI-VITAMIN [Concomitant]
     Route: 048
  6. OMEGA 3-6-9 [Concomitant]
     Route: 048
  7. THYROSENSE [Concomitant]
     Route: 048

REACTIONS (4)
  - AMNESIA [None]
  - FLATULENCE [None]
  - HEADACHE [None]
  - MEMORY IMPAIRMENT [None]
